FAERS Safety Report 8470501-8 (Version None)
Quarter: 2012Q2

REPORT INFORMATION
  Report Type: 
  Country: None (occurrence: None)
  Receive Date: 20120627
  Receipt Date: 20110802
  Transmission Date: 20120825
  Serious: No
  Sender: FDA-Public Use
  Company Number: US-MYLANLABS-2011S1016204

PATIENT
  Age: 75 Year
  Sex: Female
  Weight: 68.04 kg

DRUGS (7)
  1. VITAMIN D [Concomitant]
  2. XANAX [Concomitant]
     Indication: ANXIETY
  3. BENAZEPRIL [Concomitant]
  4. PERFOROMIST [Suspect]
     Indication: BRONCHITIS
     Route: 055
     Dates: start: 20110101
  5. PERFOROMIST [Suspect]
     Indication: EMPHYSEMA
     Route: 055
     Dates: start: 20110101
  6. PERFOROMIST [Suspect]
     Indication: ASTHMA
     Route: 055
     Dates: start: 20110101
  7. PREDNISONE TAB [Concomitant]

REACTIONS (1)
  - FATIGUE [None]
